FAERS Safety Report 13532145 (Version 1)
Quarter: 2017Q2

REPORT INFORMATION
  Report Type: Spontaneous
  Country: US (occurrence: US)
  Receive Date: 20170510
  Receipt Date: 20170510
  Transmission Date: 20170830
  Serious: No
  Sender: FDA-Public Use
  Company Number: US-GLAXOSMITHKLINE-US2017GSK068081

PATIENT
  Sex: Female

DRUGS (2)
  1. VENTOLIN HFA [Suspect]
     Active Substance: ALBUTEROL SULFATE
     Indication: ASTHMA
     Dosage: 2 PUFF(S), EVERY 4 HOURS
     Dates: start: 19640101
  2. VENTOLIN HFA [Suspect]
     Active Substance: ALBUTEROL SULFATE
     Indication: CHRONIC OBSTRUCTIVE PULMONARY DISEASE
     Dosage: 8 PUFF(S), QD

REACTIONS (7)
  - Fall [Unknown]
  - Intentional overdose [Unknown]
  - Insomnia [Unknown]
  - Back injury [Unknown]
  - Drug dose omission [Unknown]
  - Intentional product use issue [Unknown]
  - Dyspnoea [Unknown]
